FAERS Safety Report 5066120-6 (Version None)
Quarter: 2006Q3

REPORT INFORMATION
  Report Type: 
  Country: None (occurrence: None)
  Receive Date: 20060725
  Receipt Date: 20060712
  Transmission Date: 20061208
  Serious: Yes (Life-Threatening)
  Sender: FDA-Public Use
  Company Number: 200610826BYL

PATIENT
  Age: 69 Year
  Sex: Male
  Weight: 52 kg

DRUGS (11)
  1. CIPROFLOXACIN [Suspect]
     Indication: PNEUMONIA
     Dosage: 300 MG, BID, INTRAVENOUS DRIP
     Route: 041
     Dates: start: 20060602, end: 20060612
  2. BLOPRESS [Concomitant]
  3. ASPIRIN [Concomitant]
  4. TIENAM [Concomitant]
  5. NEU-UP [Concomitant]
  6. DECADRON [Concomitant]
  7. NASEA [Concomitant]
  8. GASTER [Concomitant]
  9. TAXOL [Concomitant]
  10. PARAPLATIN [Concomitant]
  11. MAXIPIME [Concomitant]

REACTIONS (4)
  - CONDITION AGGRAVATED [None]
  - INTERSTITIAL LUNG DISEASE [None]
  - LYMPHOCYTE STIMULATION TEST POSITIVE [None]
  - PULMONARY OEDEMA [None]
